FAERS Safety Report 21387412 (Version 1)
Quarter: 2022Q3

REPORT INFORMATION
  Report Type: Report from Study
  Country: BE (occurrence: BE)
  Receive Date: 20220928
  Receipt Date: 20220928
  Transmission Date: 20221026
  Serious: Yes (Hospitalization)
  Sender: FDA-Public Use
  Company Number: BE-ABBVIE-22K-013-4224226-00

PATIENT
  Age: 66 Year
  Sex: Male
  Weight: 72 kg

DRUGS (6)
  1. CARBIDOPA\LEVODOPA [Suspect]
     Active Substance: CARBIDOPA\LEVODOPA
     Indication: Parkinson^s disease
     Route: 050
     Dates: start: 20180608
  2. CARBIDOPA\LEVODOPA [Suspect]
     Active Substance: CARBIDOPA\LEVODOPA
     Dosage: MD 3.0 ML; CD 3.0ML/H; ND 1.7 ML/H  ED 1.5 ML; CND 3.6 ML/H;
     Route: 050
     Dates: start: 20200728
  3. CARBIDOPA\LEVODOPA [Suspect]
     Active Substance: CARBIDOPA\LEVODOPA
     Route: 050
     Dates: start: 20220104, end: 2022
  4. CARBIDOPA\LEVODOPA [Suspect]
     Active Substance: CARBIDOPA\LEVODOPA
     Dosage: MD: 5.5 ML, CD: 3.0 ML/H, NCD: 1.7 ML/H DURING 16 HOURS
     Route: 050
     Dates: start: 20220420, end: 20220926
  5. CARBIDOPA\LEVODOPA [Suspect]
     Active Substance: CARBIDOPA\LEVODOPA
     Dosage: MD: 4.0 ML, CD: 3.2 ML/H, ED: 1.5 ML DURING 16 HOURS
     Route: 050
     Dates: start: 20220926
  6. BENSERAZIDE\LEVODOPA [Concomitant]
     Active Substance: BENSERAZIDE\LEVODOPA
     Indication: Product used for unknown indication
     Dosage: AT 06.30 9.00 11.30 14 .00 16.30 19.00?FORM STRENGTH: 125?FORM STRENGTH UNIT: UNKNOWN

REACTIONS (2)
  - Obstruction [Unknown]
  - Inappropriate schedule of product administration [Unknown]
